FAERS Safety Report 17318888 (Version 1)
Quarter: 2020Q1

REPORT INFORMATION
  Report Type: Spontaneous
  Country: BR (occurrence: BR)
  Receive Date: 20200124
  Receipt Date: 20200124
  Transmission Date: 20200409
  Serious: Yes (Other)
  Sender: FDA-Public Use
  Company Number: BR-009507513-2001BRA006837

PATIENT
  Age: 40 Year
  Sex: Male
  Weight: 76 kg

DRUGS (4)
  1. HETORI [Suspect]
     Active Substance: ETORICOXIB
     Indication: BACK DISORDER
     Dosage: 1 TABLET PER DAY FOR 7 DAYS.
     Route: 048
     Dates: start: 20200113
  2. LANTUS [Concomitant]
     Active Substance: INSULIN GLARGINE
     Dosage: 50 UNITS ONCE DAILY
     Dates: start: 1995
  3. LOSARTAN POTASSIUM. [Suspect]
     Active Substance: LOSARTAN POTASSIUM
     Indication: GLOMERULAR FILTRATION RATE ABNORMAL
     Dosage: 1 TABLET PER DAY
     Route: 048
  4. HETORI [Suspect]
     Active Substance: ETORICOXIB
     Indication: SPONDYLOLISTHESIS

REACTIONS (3)
  - Dysgeusia [Unknown]
  - Diabetes mellitus inadequate control [Unknown]
  - Abdominal discomfort [Unknown]

NARRATIVE: CASE EVENT DATE: 20200113
